FAERS Safety Report 9524979 (Version 3)
Quarter: 2015Q1

REPORT INFORMATION
  Report Type: Spontaneous
  Country: US (occurrence: US)
  Receive Date: 20130916
  Receipt Date: 20150310
  Transmission Date: 20150721
  Serious: Yes (Hospitalization, Other)
  Sender: FDA-Public Use
  Company Number: US-BAYER-2013-111258

PATIENT
  Age: 24 Year
  Sex: Female
  Weight: 58.96 kg

DRUGS (4)
  1. MIRENA [Suspect]
     Active Substance: LEVONORGESTREL
     Indication: CONTRACEPTION
     Dosage: 20 MCG/24HR, CONT
     Route: 015
     Dates: start: 20070125, end: 20080610
  2. FLAGYL [Concomitant]
     Active Substance: METRONIDAZOLE\METRONIDAZOLE HYDROCHLORIDE
  3. PEPCID [Concomitant]
     Active Substance: FAMOTIDINE
  4. MIRENA [Suspect]
     Active Substance: LEVONORGESTREL
     Indication: CONTRACEPTION
     Dosage: 20 MCG/24HR, CONT
     Route: 015
     Dates: start: 20060907, end: 20080409

REACTIONS (13)
  - Abdominal pain [None]
  - Acne [Not Recovered/Not Resolved]
  - Anxiety [Not Recovered/Not Resolved]
  - Device use error [None]
  - Pelvic pain [None]
  - Uterine injury [Not Recovered/Not Resolved]
  - Injury [None]
  - Emotional distress [Not Recovered/Not Resolved]
  - Alopecia [Not Recovered/Not Resolved]
  - Fear [Not Recovered/Not Resolved]
  - Uterine perforation [Not Recovered/Not Resolved]
  - Medical device complication [None]
  - Pain [None]

NARRATIVE: CASE EVENT DATE: 200609
